FAERS Safety Report 9881375 (Version 4)
Quarter: 2014Q2

REPORT INFORMATION
  Report Type: Spontaneous
  Country: US (occurrence: US)
  Receive Date: 20140207
  Receipt Date: 20140421
  Transmission Date: 20141212
  Serious: Yes (Death, Hospitalization, Other)
  Sender: FDA-Public Use
  Company Number: US-BAXTER-2014BAX005445

PATIENT
  Age: 60 Year
  Sex: Female

DRUGS (2)
  1. DIANEAL LOW CALCIUM [Suspect]
     Indication: RENAL FAILURE CHRONIC
     Route: 033
     Dates: start: 201208, end: 20140401
  2. DIANEAL LOW CALCIUM [Suspect]
     Indication: RENAL FAILURE CHRONIC
     Route: 033
     Dates: start: 201208, end: 20140401

REACTIONS (6)
  - Cardiac arrest [Fatal]
  - Post procedural complication [Fatal]
  - Cardiac failure [Fatal]
  - Osteomyelitis [Fatal]
  - Diabetic foot [Recovering/Resolving]
  - Cerebrovascular accident [Recovering/Resolving]
